FAERS Safety Report 24167931 (Version 1)
Quarter: 2024Q3

REPORT INFORMATION
  Report Type: Spontaneous
  Country: US (occurrence: US)
  Receive Date: 20240802
  Receipt Date: 20240802
  Transmission Date: 20241017
  Serious: Yes (Hospitalization, Other)
  Sender: SANOFI AVENTIS
  Company Number: US-SA-2024SA223993

PATIENT
  Age: 35 Year
  Sex: Male

DRUGS (1)
  1. SEVELAMER [Suspect]
     Active Substance: SEVELAMER
     Dosage: 2400 MG, TID

REACTIONS (9)
  - Ischaemic enteritis [Recovered/Resolved]
  - Haematochezia [Recovered/Resolved]
  - Abdominal pain [Recovered/Resolved]
  - Diarrhoea [Recovered/Resolved]
  - Colitis [Recovered/Resolved]
  - Mucosal necrosis [Recovered/Resolved]
  - Gastrointestinal wall thickening [Recovered/Resolved]
  - Intestinal ulcer [Recovered/Resolved]
  - Crystal deposit intestine [Recovering/Resolving]
